FAERS Safety Report 14538813 (Version 1)
Quarter: 2018Q1

REPORT INFORMATION
  Report Type: Spontaneous
  Country: US (occurrence: US)
  Receive Date: 20180216
  Receipt Date: 20180216
  Transmission Date: 20180509
  Serious: No
  Sender: FDA-Public Use
  Company Number: US-JNJFOC-20180131706

PATIENT
  Age: 15 Month
  Sex: Female

DRUGS (2)
  1. MOTRIN INFANTS [Suspect]
     Active Substance: IBUPROFEN
     Indication: ACCIDENTAL EXPOSURE TO PRODUCT
     Route: 065
  2. MOTRIN INFANTS [Suspect]
     Active Substance: IBUPROFEN
     Indication: INFLUENZA
     Route: 065

REACTIONS (1)
  - Extra dose administered [Unknown]
